FAERS Safety Report 15255314 (Version 1)
Quarter: 2018Q3

REPORT INFORMATION
  Report Type: Spontaneous
  Country: US (occurrence: US)
  Receive Date: 20180808
  Receipt Date: 20180808
  Transmission Date: 20181010
  Serious: No
  Sender: FDA-Public Use
  Company Number: US-PFIZER INC-2018314476

PATIENT
  Age: 49 Year
  Sex: Female

DRUGS (1)
  1. ADVIL PM [Suspect]
     Active Substance: DIPHENHYDRAMINE CITRATE\IBUPROFEN
     Indication: SLEEP DISORDER
     Dosage: [IBUPROFEN 200MG]/[DIPHENHYDRAMINE 25MG] 1 DF, 1X/DAY
     Dates: start: 201801

REACTIONS (1)
  - Drug ineffective [Unknown]
